FAERS Safety Report 8053123-2 (Version None)
Quarter: 2012Q1

REPORT INFORMATION
  Report Type: 
  Country: None (occurrence: None)
  Receive Date: 20120118
  Receipt Date: 20111219
  Transmission Date: 20120608
  Serious: Yes (Death)
  Sender: FDA-Public Use
  Company Number: US-PFIZER INC-2011310312

PATIENT
  Age: 44 Year
  Sex: Male

DRUGS (5)
  1. TRAZODONE HCL [Suspect]
     Route: 048
  2. HYDROXYZINE PAMOATE [Suspect]
     Route: 048
  3. OXYCODONE HCL [Suspect]
     Route: 048
  4. PAROXETINE [Suspect]
     Route: 048
  5. MIRTAZAPINE [Suspect]
     Route: 048

REACTIONS (4)
  - DRUG ABUSE [None]
  - CARDIAC ARREST [None]
  - RESPIRATORY ARREST [None]
  - TOXICITY TO VARIOUS AGENTS [None]
